FAERS Safety Report 9357614 (Version 1)
Quarter: 2013Q2

REPORT INFORMATION
  Report Type: Spontaneous
  Country: GB (occurrence: GB)
  Receive Date: 20130620
  Receipt Date: 20130620
  Transmission Date: 20140414
  Serious: Yes (Other)
  Sender: FDA-Public Use
  Company Number: GB-AMGEN-GBRSP2013042579

PATIENT
  Age: 57 Year
  Sex: Female
  Weight: 63 kg

DRUGS (2)
  1. DENOSUMAB [Suspect]
     Indication: OSTEOPOROSIS
     Dosage: UNK
     Route: 042
     Dates: start: 20110914
  2. CALCICHEW D3 [Concomitant]
     Indication: OSTEOPENIA
     Dosage: 1 DF, BID
     Route: 048

REACTIONS (5)
  - Chest pain [Recovering/Resolving]
  - Cough [Recovering/Resolving]
  - Haemophilus test positive [Recovering/Resolving]
  - Lung consolidation [Recovering/Resolving]
  - Mycobacterium test positive [Recovering/Resolving]
